FAERS Safety Report 25367030 (Version 2)
Quarter: 2025Q2

REPORT INFORMATION
  Report Type: Spontaneous
  Country: NL (occurrence: NL)
  Receive Date: 20250528
  Receipt Date: 20250602
  Transmission Date: 20250716
  Serious: Yes (Other)
  Sender: TEVA
  Company Number: NL-TEVA-VS-3334221

PATIENT
  Sex: Male

DRUGS (1)
  1. CISPLATIN [Suspect]
     Active Substance: CISPLATIN
     Indication: Oropharyngeal squamous cell carcinoma
     Dosage: RECEIVED TOTAL 7 CYCLES OF CISPLATIN 40 MG/M2 WEEKLY WITH A CUMULATIVE DOSE OF 280 MG/M2
     Route: 042

REACTIONS (9)
  - Taste disorder [Unknown]
  - Mucosal inflammation [Unknown]
  - Vomiting [Unknown]
  - Constipation [Unknown]
  - Dermatitis [Recovered/Resolved]
  - Abdominal pain upper [Unknown]
  - Diarrhoea [Unknown]
  - Gastrointestinal toxicity [Unknown]
  - Nausea [Unknown]
